FAERS Safety Report 20315946 (Version 1)
Quarter: 2022Q1

REPORT INFORMATION
  Report Type: Spontaneous
  Country: US (occurrence: None)
  Receive Date: 20220110
  Receipt Date: 20220110
  Transmission Date: 20220423
  Serious: No
  Sender: FDA-Public Use
  Company Number: US-ROCHE-2926404

PATIENT
  Age: 24 Year
  Sex: Male
  Weight: 92 kg

DRUGS (4)
  1. RITUXAN [Suspect]
     Active Substance: RITUXIMAB
     Indication: Pemphigus
     Route: 041
     Dates: start: 20210924
  2. PREDNISONE [Concomitant]
     Active Substance: PREDNISONE
     Route: 048
  3. LIDEX [Concomitant]
     Active Substance: FLUOCINONIDE
     Dosage: APPLIES ONCE DAILY AT NIGHT
     Route: 061
  4. CLOBETASOL [Concomitant]
     Active Substance: CLOBETASOL
     Dosage: APPLIES TWICE A DAY
     Route: 061

REACTIONS (2)
  - Off label use [Unknown]
  - No adverse event [Unknown]

NARRATIVE: CASE EVENT DATE: 20210924
